FAERS Safety Report 6569873-0 (Version None)
Quarter: 2010Q1

REPORT INFORMATION
  Report Type: 
  Country: None (occurrence: None)
  Receive Date: 20100204
  Receipt Date: 20100125
  Transmission Date: 20100710
  Serious: Yes (Hospitalization)
  Sender: FDA-Public Use
  Company Number: PHHY2010FR05280

PATIENT
  Sex: Female

DRUGS (6)
  1. VOLTAREN [Suspect]
     Dosage: 75 MG, BID
     Route: 048
     Dates: end: 20090911
  2. THERALENE [Suspect]
     Dosage: 5 DROPS DAILY
     Route: 048
     Dates: start: 20090909, end: 20090911
  3. LAMALINE [Suspect]
     Dosage: 6 TABLETS DAILY
     Route: 048
     Dates: end: 20090911
  4. MYOLASTAN [Suspect]
     Dosage: 1 DF DAILY
     Route: 048
     Dates: end: 20090911
  5. CORDARONE [Concomitant]
     Dosage: 200 MG, QD
     Route: 048
  6. GAVISCON [Concomitant]
     Dosage: 3 DF DAILY
     Route: 048

REACTIONS (4)
  - ABNORMAL BEHAVIOUR [None]
  - AGITATION [None]
  - GENERAL PHYSICAL HEALTH DETERIORATION [None]
  - SOMNOLENCE [None]
